FAERS Safety Report 22639661 (Version 1)
Quarter: 2023Q2

REPORT INFORMATION
  Report Type: Spontaneous
  Country: US (occurrence: US)
  Receive Date: 20230626
  Receipt Date: 20230626
  Transmission Date: 20230722
  Serious: No
  Sender: FDA-Public Use
  Company Number: US-BRISTOL-MYERS SQUIBB COMPANY-2023-089210

PATIENT
  Age: 75 Year
  Sex: Male
  Weight: 95.71 kg

DRUGS (1)
  1. REVLIMID [Suspect]
     Active Substance: LENALIDOMIDE
     Indication: Plasma cell myeloma
     Dosage: FREQUENCY:14DAYS ON W 7DAYS OFF
     Route: 048
     Dates: start: 20220928

REACTIONS (2)
  - Rash [Recovering/Resolving]
  - Off label use [Unknown]
